FAERS Safety Report 11089401 (Version 1)
Quarter: 2015Q2

REPORT INFORMATION
  Report Type: Spontaneous
  Country: US (occurrence: None)
  Receive Date: 20150501
  Receipt Date: 20150501
  Transmission Date: 20150821
  Serious: Yes (Hospitalization)
  Sender: FDA-Public Use
  Company Number: US-H14001-15-00638

PATIENT
  Age: 31 Year
  Sex: Female

DRUGS (3)
  1. PHENERGAN [Suspect]
     Active Substance: PROMETHAZINE HYDROCHLORIDE
     Indication: PRODUCT USED FOR UNKNOWN INDICATION
     Dosage: (UNKNOWN), INTRAVENOUS (NOT OTHERWISE SPECIFIED)
     Route: 042
  2. CAYSTON [Suspect]
     Active Substance: AZTREONAM
     Indication: BRONCHIECTASIS
     Dosage: (UNKNOWN), INTRAVENOUS?
     Route: 042
  3. AZTREONAM LYSINE [Suspect]
     Active Substance: AZTREONAM LYSINE
     Indication: PRODUCT USED FOR UNKNOWN INDICATION
     Dosage: 10 D?INTRAVENOUS
     Route: 042

REACTIONS (5)
  - Nausea [None]
  - Vertigo [None]
  - Condition aggravated [None]
  - Lung disorder [None]
  - Tremor [None]
